FAERS Safety Report 9787453 (Version 1)
Quarter: 2013Q4

REPORT INFORMATION
  Report Type: Spontaneous
  Country: US (occurrence: US)
  Receive Date: 20131230
  Receipt Date: 20131230
  Transmission Date: 20140711
  Serious: No
  Sender: FDA-Public Use
  Company Number: US-BIOGENIDEC-2013BI123734

PATIENT
  Sex: 0

DRUGS (4)
  1. AVONEX [Suspect]
     Indication: PRODUCT USED FOR UNKNOWN INDICATION
  2. TECFIDERA [Concomitant]
  3. TYSABRI [Concomitant]
     Route: 042
  4. NALTREXONE [Concomitant]

REACTIONS (1)
  - Drug intolerance [Unknown]
